FAERS Safety Report 17515200 (Version 1)
Quarter: 2020Q1

REPORT INFORMATION
  Report Type: Spontaneous
  Country: GB (occurrence: GB)
  Receive Date: 20200309
  Receipt Date: 20200309
  Transmission Date: 20200409
  Serious: Yes (Other)
  Sender: FDA-Public Use
  Company Number: GB-MICRO LABS LIMITED-ML2020-00579

PATIENT
  Age: 29 Year
  Sex: Male

DRUGS (6)
  1. ATORVASTATIN [Suspect]
     Active Substance: ATORVASTATIN
     Indication: ANTIPHOSPHOLIPID SYNDROME
  2. CLOPIDOGREL [Suspect]
     Active Substance: CLOPIDOGREL BISULFATE
     Indication: ANTIPHOSPHOLIPID SYNDROME
  3. RIVAROXABAN [Suspect]
     Active Substance: RIVAROXABAN
     Indication: ANTIPHOSPHOLIPID SYNDROME
  4. HYDROXYCHLOROQUINE [Suspect]
     Active Substance: HYDROXYCHLOROQUINE
     Indication: ANTIPHOSPHOLIPID SYNDROME
  5. APIXABAN [Suspect]
     Active Substance: APIXABAN
     Indication: ANTIPHOSPHOLIPID SYNDROME
  6. WARFARIN [Suspect]
     Active Substance: WARFARIN
     Indication: ANTIPHOSPHOLIPID SYNDROME

REACTIONS (1)
  - Drug ineffective [Unknown]
